FAERS Safety Report 5315792-7 (Version None)
Quarter: 2007Q2

REPORT INFORMATION
  Report Type: 
  Country: None (occurrence: None)
  Receive Date: 20070503
  Receipt Date: 20070501
  Transmission Date: 20071010
  Serious: Yes (Hospitalization)
  Sender: FDA-Public Use
  Company Number: US-GLAXOSMITHKLINE-A0649494A

PATIENT
  Age: 25 Year
  Sex: Female

DRUGS (5)
  1. LAMICTAL [Suspect]
     Indication: BIPOLAR DISORDER
     Dosage: 200MG TWICE PER DAY
     Route: 048
  2. AMITRIPTYLINE HCL [Concomitant]
     Indication: CONCUSSION
  3. FLUOXETINE [Concomitant]
  4. METFORMIN HCL [Concomitant]
  5. ATIVAN [Concomitant]

REACTIONS (7)
  - CONCUSSION [None]
  - DEPRESSION [None]
  - DRUG INEFFECTIVE [None]
  - DYSGRAPHIA [None]
  - HEADACHE [None]
  - MOTOR DYSFUNCTION [None]
  - PYELONEPHRITIS [None]
